FAERS Safety Report 13782681 (Version 1)
Quarter: 2017Q3

REPORT INFORMATION
  Report Type: Report from Study
  Country: US (occurrence: US)
  Receive Date: 20170724
  Receipt Date: 20170724
  Transmission Date: 20171127
  Serious: Yes (Death, Hospitalization)
  Sender: FDA-Public Use
  Company Number: US-IPSEN BIOPHARMACEUTICALS, INC.-2016-01187

PATIENT
  Sex: Male
  Weight: 57 kg

DRUGS (4)
  1. OXYCODONE [Concomitant]
     Active Substance: OXYCODONE
  2. SOMATULINE DEPOT [Suspect]
     Active Substance: LANREOTIDE ACETATE
     Indication: HEPATIC CANCER
     Dosage: 120 MG
     Route: 065
     Dates: start: 2015
  3. POTASSIUM [Concomitant]
     Active Substance: POTASSIUM
  4. MAGNESIUM [Concomitant]
     Active Substance: MAGNESIUM

REACTIONS (3)
  - Pneumonia [Unknown]
  - Inappropriate schedule of drug administration [Unknown]
  - Disease progression [Fatal]

NARRATIVE: CASE EVENT DATE: 2015
